FAERS Safety Report 11032818 (Version 2)
Quarter: 2015Q2

REPORT INFORMATION
  Report Type: Spontaneous
  Country: DE (occurrence: DE)
  Receive Date: 20150415
  Receipt Date: 20150513
  Transmission Date: 20150821
  Serious: Yes (Death, Other)
  Sender: FDA-Public Use
  Company Number: DE-BAXTER-2015BAX019061

PATIENT
  Age: 67 Year
  Sex: Female
  Weight: 99 kg

DRUGS (7)
  1. ISOTONE KOCHSALZL?SUNG BAXTER [Suspect]
     Active Substance: SODIUM CHLORIDE
     Indication: DEVICE PRIMING
     Route: 042
     Dates: start: 20150401
  2. NOREPINEPHRINE [Concomitant]
     Active Substance: NOREPINEPHRINE\NOREPINEPHRINE BITARTRATE
     Indication: PRODUCT USED FOR UNKNOWN INDICATION
     Route: 042
  3. PHOXILIUM [Suspect]
     Active Substance: CALCIUM CHLORIDE\MAGNESIUM CHLORIDE\POTASSIUM CHLORIDE\SODIUM BICARBONATE\SODIUM CHLORIDE\SODIUM PHOSPHATE, DIBASIC
     Indication: ACUTE KIDNEY INJURY
  4. CALCIUM GLUCONATE. [Suspect]
     Active Substance: CALCIUM GLUCONATE
     Indication: RENAL REPLACEMENT THERAPY
     Route: 042
     Dates: start: 20150401
  5. DOBUTAMINE [Concomitant]
     Active Substance: DOBUTAMINE\DOBUTAMINE HYDROCHLORIDE
     Indication: PRODUCT USED FOR UNKNOWN INDICATION
     Route: 042
  6. PHOXILIUM [Suspect]
     Active Substance: CALCIUM CHLORIDE\MAGNESIUM CHLORIDE\POTASSIUM CHLORIDE\SODIUM BICARBONATE\SODIUM CHLORIDE\SODIUM PHOSPHATE, DIBASIC
     Indication: SEPSIS
     Route: 042
     Dates: start: 20150401, end: 20150402
  7. HEPARIN [Suspect]
     Active Substance: HEPARIN SODIUM
     Indication: RENAL REPLACEMENT THERAPY
     Route: 042
     Dates: start: 20150401, end: 20150402

REACTIONS (7)
  - Activated partial thromboplastin time prolonged [None]
  - Hepatic failure [Unknown]
  - Metabolic acidosis [Unknown]
  - Multi-organ failure [Fatal]
  - Coagulopathy [Unknown]
  - Sepsis [Fatal]
  - Hyperkalaemia [Unknown]

NARRATIVE: CASE EVENT DATE: 20150401
